FAERS Safety Report 4580160-2 (Version None)
Quarter: 2005Q1

REPORT INFORMATION
  Report Type: 
  Country: None (occurrence: None)
  Receive Date: 20050214
  Receipt Date: 20050208
  Transmission Date: 20050727
  Serious: Yes (Other)
  Sender: FDA-Public Use
  Company Number: US-JNJFOC-20041104976

PATIENT
  Age: 49 Year
  Sex: Male

DRUGS (1)
  1. NATRECOR [Suspect]

REACTIONS (2)
  - PERFORATED ULCER [None]
  - WEIGHT DECREASED [None]
